FAERS Safety Report 4419673-2 (Version None)
Quarter: 2004Q3

REPORT INFORMATION
  Report Type: 
  Country: None (occurrence: None)
  Receive Date: 20040804
  Receipt Date: 20040713
  Transmission Date: 20050211
  Serious: Yes (Death)
  Sender: FDA-Public Use
  Company Number: US_0407104267

PATIENT
  Sex: Female

DRUGS (3)
  1. GEMCITABINE HYDROCHLORIDE-IV (GEMCITABINE) [Suspect]
     Indication: BREAST CANCER METASTATIC
     Dosage: 2500 MG/M2 OTHER
  2. DOCETAXEL [Concomitant]
  3. DEXAMETHASONE [Concomitant]

REACTIONS (2)
  - CATHETER SEPSIS [None]
  - DRUG TOXICITY [None]
